FAERS Safety Report 7714728-9 (Version None)
Quarter: 2011Q3

REPORT INFORMATION
  Report Type: 
  Country: None (occurrence: None)
  Receive Date: 20110829
  Receipt Date: 20110817
  Transmission Date: 20111222
  Serious: Yes (Hospitalization, Other)
  Sender: FDA-Public Use
  Company Number: US-TYCO HEALTHCARE/MALLINCKRODT-T201101429

PATIENT
  Sex: Female

DRUGS (1)
  1. OPTIRAY 160 [Suspect]
     Indication: COMPUTERISED TOMOGRAM
     Dosage: 30 ML, SINGLE
     Route: 042
     Dates: start: 20110718, end: 20110718

REACTIONS (4)
  - OEDEMA PERIPHERAL [None]
  - DRUG ADMINISTRATION ERROR [None]
  - INJECTION SITE SWELLING [None]
  - EXTRAVASATION [None]
